FAERS Safety Report 5499135-4 (Version None)
Quarter: 2007Q4

REPORT INFORMATION
  Report Type: 
  Country: None (occurrence: None)
  Receive Date: 20071026
  Receipt Date: 20071019
  Transmission Date: 20080405
  Serious: Yes (Life-Threatening)
  Sender: FDA-Public Use
  Company Number: GB-WYE-H00753707

PATIENT
  Age: 97 Year
  Sex: Female

DRUGS (4)
  1. AMIODARONE [Suspect]
     Indication: VENTRICULAR TACHYCARDIA
     Route: 065
  2. AMLODIPINE [Concomitant]
     Indication: HYPERTENSION
     Dosage: DOSE UNKNOWN
     Route: 065
  3. LEVOTHYROXINE SODIUM [Concomitant]
     Dosage: DOSE UNKNOWN
     Route: 065
  4. INDAPAMIDE [Suspect]
     Indication: HYPERTENSION
     Dosage: 2.5 MG, FREQUENCY UNSPECIFIED
     Route: 065

REACTIONS (5)
  - ELECTROCARDIOGRAM QT INTERVAL [None]
  - HYPOKALAEMIA [None]
  - HYPOMAGNESAEMIA [None]
  - SYNCOPE [None]
  - TORSADE DE POINTES [None]
